FAERS Safety Report 20151619 (Version 1)
Quarter: 2021Q4

REPORT INFORMATION
  Report Type: Spontaneous
  Country: US (occurrence: US)
  Receive Date: 20211206
  Receipt Date: 20211206
  Transmission Date: 20220303
  Serious: Yes (Other)
  Sender: FDA-Public Use
  Company Number: US-Fresenius Medical Care Renal Therapies Group-FMC-2111-001735

PATIENT
  Age: 78 Year
  Sex: Male
  Weight: 129 kg

DRUGS (1)
  1. DELFLEX [Suspect]
     Active Substance: CALCIUM CHLORIDE\DEXTROSE\MAGNESIUM CHLORIDE\SODIUM CHLORIDE\SODIUM LACTATE
     Indication: End stage renal disease
     Dosage: TIDAL FILL VOLUME = 3000 ML, EXCHANGES = 4, FILL VOLUME 2800 ML, DWELL TIME = 1.0 HOUR 42 MINUTES.
     Route: 033

REACTIONS (1)
  - Peritonitis bacterial [Unknown]
